FAERS Safety Report 12767859 (Version 1)
Quarter: 2016Q3

REPORT INFORMATION
  Report Type: Spontaneous
  Country: ES (occurrence: ES)
  Receive Date: 20160921
  Receipt Date: 20160921
  Transmission Date: 20161109
  Serious: Yes (Hospitalization, Other)
  Sender: FDA-Public Use
  Company Number: ES-IPCA LABORATORIES LIMITED-IPC201609-000778

PATIENT
  Age: 56 Year
  Sex: Female

DRUGS (1)
  1. HYDROXYCHLOROQUINE SULFATE. [Suspect]
     Active Substance: HYDROXYCHLOROQUINE SULFATE

REACTIONS (4)
  - Toxicity to various agents [Unknown]
  - Maculopathy [Not Recovered/Not Resolved]
  - Retinal detachment [Recovering/Resolving]
  - Macular detachment [Recovered/Resolved]
